FAERS Safety Report 7118559-2 (Version None)
Quarter: 2010Q4

REPORT INFORMATION
  Report Type: 
  Country: None (occurrence: None)
  Receive Date: 20101123
  Receipt Date: 20101104
  Transmission Date: 20110411
  Serious: Yes (Other)
  Sender: FDA-Public Use
  Company Number: US-PFIZER INC-2010111480

PATIENT
  Sex: Male

DRUGS (1)
  1. CHILDREN'S MOTRIN [Suspect]
     Indication: HEADACHE
     Dosage: 15 ML, 1 IN 1 TOTAL (3 TEASPONS,ONCE)
     Route: 048
     Dates: start: 20100828, end: 20100828

REACTIONS (5)
  - COMPLICATED MIGRAINE [None]
  - GAIT DISTURBANCE [None]
  - MENTAL STATUS CHANGES [None]
  - PRODUCT QUALITY ISSUE [None]
  - SPEECH DISORDER [None]
